FAERS Safety Report 18975852 (Version 1)
Quarter: 2021Q1

REPORT INFORMATION
  Report Type: Spontaneous
  Country: CH (occurrence: CH)
  Receive Date: 20210306
  Receipt Date: 20210306
  Transmission Date: 20210420
  Serious: Yes (Other)
  Sender: FDA-Public Use
  Company Number: CH-ASTRAZENECA-2021A081792

PATIENT
  Age: 51 Year
  Sex: Male

DRUGS (3)
  1. NUCALA [Suspect]
     Active Substance: MEPOLIZUMAB
     Route: 065
     Dates: start: 202006, end: 202007
  2. FASENRA [Suspect]
     Active Substance: BENRALIZUMAB
     Dosage: 30MG/ML; SINGLE APPLICATION
     Route: 058
     Dates: start: 20200911
  3. NUCALA [Suspect]
     Active Substance: MEPOLIZUMAB
     Route: 065
     Dates: start: 201812, end: 202002

REACTIONS (2)
  - Myalgia [Recovering/Resolving]
  - Arthralgia [Recovering/Resolving]
